FAERS Safety Report 25371031 (Version 2)
Quarter: 2025Q2

REPORT INFORMATION
  Report Type: Spontaneous
  Country: US (occurrence: US)
  Receive Date: 20250529
  Receipt Date: 20250616
  Transmission Date: 20250717
  Serious: No
  Sender: GLAXOSMITHKLINE
  Company Number: US-GSK-US2025059215

PATIENT
  Sex: Female

DRUGS (1)
  1. NUCALA [Suspect]
     Active Substance: MEPOLIZUMAB
     Indication: Asthma
     Dosage: 10 MG/KG, Q4W

REACTIONS (4)
  - Illness [Not Recovered/Not Resolved]
  - Seasonal allergy [Unknown]
  - Dyspnoea [Unknown]
  - Rhinorrhoea [Unknown]
